FAERS Safety Report 8845331 (Version 1)
Quarter: 2012Q4

REPORT INFORMATION
  Report Type: 
  Country: US (occurrence: US)
  Receive Date: 20121017
  Receipt Date: 20121017
  Transmission Date: 20130627
  Serious: Yes (Hospitalization)
  Sender: FDA-Public Use
  Company Number: US-JNJFOC-20121007670

PATIENT
  Age: 64 Year
  Sex: Female

DRUGS (1)
  1. DOXORUBICIN HYDROCHLORIDE (DOXIL) [Suspect]
     Indication: BREAST CANCER METASTATIC
     Dosage: cycle 1, day 1
     Route: 042
     Dates: start: 20121005, end: 20121005

REACTIONS (4)
  - Dyspnoea [Not Recovered/Not Resolved]
  - Back pain [Not Recovered/Not Resolved]
  - Urticaria [Unknown]
  - Blood lactate dehydrogenase increased [Unknown]
